FAERS Safety Report 7048293-9 (Version None)
Quarter: 2010Q4

REPORT INFORMATION
  Report Type: 
  Country: None (occurrence: None)
  Receive Date: 20101015
  Receipt Date: 20101008
  Transmission Date: 20110411
  Serious: Yes (Hospitalization)
  Sender: FDA-Public Use
  Company Number: US-US-EMD SERONO, INC.-7021450

PATIENT
  Sex: Female

DRUGS (6)
  1. REBIF [Suspect]
     Indication: MULTIPLE SCLEROSIS
     Route: 058
     Dates: start: 20091116
  2. SEROQUEL [Concomitant]
     Dates: end: 20100901
  3. KLONOPIN [Concomitant]
  4. PAIN MEDICATIONS [Concomitant]
  5. COUMADIN [Concomitant]
  6. SEROQUEL XR [Concomitant]
     Dates: start: 20101006

REACTIONS (11)
  - ARTHRALGIA [None]
  - CHILLS [None]
  - DYSSTASIA [None]
  - FATIGUE [None]
  - HYPOAESTHESIA [None]
  - LOSS OF CONSCIOUSNESS [None]
  - MEMORY IMPAIRMENT [None]
  - MYALGIA [None]
  - NECK PAIN [None]
  - PROGRESSIVE MULTIPLE SCLEROSIS [None]
  - PYREXIA [None]
